FAERS Safety Report 19526703 (Version 1)
Quarter: 2021Q3

REPORT INFORMATION
  Report Type: Spontaneous
  Country: FR (occurrence: FR)
  Receive Date: 20210713
  Receipt Date: 20210713
  Transmission Date: 20211014
  Serious: Yes (Hospitalization)
  Sender: FDA-Public Use
  Company Number: FR-UCBSA-2021032217

PATIENT
  Age: 21 Year
  Sex: Male
  Weight: 73 kg

DRUGS (1)
  1. BRIVARACETAM [Suspect]
     Active Substance: BRIVARACETAM
     Indication: EPILEPSY
     Dosage: 25 TO 100 MG PER DAY
     Route: 048
     Dates: start: 20210401, end: 20210417

REACTIONS (5)
  - Somnolence [Not Recovered/Not Resolved]
  - Aphonia [Not Recovered/Not Resolved]
  - Agitation [Not Recovered/Not Resolved]
  - Partial seizures [Not Recovered/Not Resolved]
  - Suicidal ideation [Not Recovered/Not Resolved]

NARRATIVE: CASE EVENT DATE: 20210416
